FAERS Safety Report 10214240 (Version 3)
Quarter: 2014Q2

REPORT INFORMATION
  Report Type: Spontaneous
  Country: HU (occurrence: HU)
  Receive Date: 20140603
  Receipt Date: 20140611
  Transmission Date: 20141212
  Serious: Yes (Death)
  Sender: FDA-Public Use
  Company Number: HU-PFIZER INC-2014081218

PATIENT
  Age: 69 Year
  Sex: Female

DRUGS (5)
  1. SUTENT [Suspect]
     Indication: RENAL CANCER METASTATIC
     Dosage: 25 MG, 1X/DAY
     Route: 048
     Dates: start: 20140307
  2. MEDROL [Concomitant]
     Indication: ARTHRALGIA
     Dosage: 4 MG, EVERY OTHER DAY
  3. RIVOTRIL [Concomitant]
     Indication: ANTIDEPRESSANT THERAPY
     Dosage: UNK
  4. LAMOLEP [Concomitant]
     Indication: ANTIDEPRESSANT THERAPY
     Dosage: UNK
  5. VALDOXAN [Concomitant]
     Indication: ANTIDEPRESSANT THERAPY
     Dosage: UNK

REACTIONS (7)
  - Death [Fatal]
  - Asthenia [Not Recovered/Not Resolved]
  - Blood pressure increased [Recovered/Resolved]
  - Glossodynia [Not Recovered/Not Resolved]
  - Nausea [Not Recovered/Not Resolved]
  - Vomiting [Not Recovered/Not Resolved]
  - Hypotension [Not Recovered/Not Resolved]
